FAERS Safety Report 24998284 (Version 1)
Quarter: 2025Q1

REPORT INFORMATION
  Report Type: Spontaneous
  Country: US (occurrence: US)
  Receive Date: 20250222
  Receipt Date: 20250222
  Transmission Date: 20250409
  Serious: No
  Sender: SANOFI AVENTIS
  Company Number: US-SA-2025SA046379

PATIENT
  Sex: Female
  Weight: 70.884 kg

DRUGS (10)
  1. DUPIXENT [Suspect]
     Active Substance: DUPILUMAB
     Indication: Asthma
     Dosage: 300 MG, QOW
     Route: 058
  2. LOSARTAN [Concomitant]
     Active Substance: LOSARTAN
  3. MELOXICAM [Concomitant]
     Active Substance: MELOXICAM
  4. ATORVASTATIN [Concomitant]
     Active Substance: ATORVASTATIN
  5. CITALOPRAM HYDROBROMIDE [Concomitant]
     Active Substance: CITALOPRAM HYDROBROMIDE
  6. FLUTICASONE PROPIONATE\SALMETEROL XINAFOATE [Concomitant]
     Active Substance: FLUTICASONE PROPIONATE\SALMETEROL XINAFOATE
  7. PROAIR RESPICLICK [Concomitant]
     Active Substance: ALBUTEROL SULFATE
  8. OXYBUTYNIN [Concomitant]
     Active Substance: OXYBUTYNIN
  9. ACYCLOVIR [Concomitant]
     Active Substance: ACYCLOVIR
  10. SYNTHROID [Concomitant]
     Active Substance: LEVOTHYROXINE SODIUM

REACTIONS (1)
  - Pain [Not Recovered/Not Resolved]
